FAERS Safety Report 9858029 (Version 1)
Quarter: 2014Q1

REPORT INFORMATION
  Report Type: Spontaneous
  Country: GB (occurrence: GB)
  Receive Date: 20140131
  Receipt Date: 20140131
  Transmission Date: 20141002
  Serious: Yes (Hospitalization)
  Sender: FDA-Public Use
  Company Number: GB-JNJFOC-20140117341

PATIENT
  Age: 83 Year
  Sex: Female
  Weight: 53.97 kg

DRUGS (9)
  1. XARELTO [Suspect]
     Indication: CEREBROVASCULAR ACCIDENT PROPHYLAXIS
     Route: 048
     Dates: start: 20130925, end: 20131016
  2. XARELTO [Suspect]
     Indication: ATRIAL FIBRILLATION
     Route: 048
     Dates: start: 20130925, end: 20131016
  3. ALENDRONIC ACID [Concomitant]
     Route: 065
  4. ATORVASTATIN [Concomitant]
     Route: 065
  5. BISOPROLOL [Concomitant]
     Route: 065
  6. LOSARTAN [Concomitant]
     Route: 065
  7. NITROFURANTOIN [Concomitant]
     Route: 065
  8. OMEPRAZOLE [Concomitant]
     Route: 065
  9. WARFARIN [Concomitant]
     Route: 065

REACTIONS (2)
  - Renal impairment [Unknown]
  - Haemoglobin decreased [Recovered/Resolved]
